FAERS Safety Report 17752698 (Version 2)
Quarter: 2020Q2

REPORT INFORMATION
  Report Type: Spontaneous
  Country: FR (occurrence: FR)
  Receive Date: 20200506
  Receipt Date: 20200508
  Transmission Date: 20200714
  Serious: Yes (Death, Other)
  Sender: FDA-Public Use
  Company Number: FR-PFIZER INC-2020178137

PATIENT
  Age: 50 Year
  Sex: Female
  Weight: 75 kg

DRUGS (11)
  1. METFORMIN [Concomitant]
     Active Substance: METFORMIN HYDROCHLORIDE
     Dosage: 700 MG, 2X/DAY
  2. DOLIPRANE [Concomitant]
     Active Substance: ACETAMINOPHEN
     Indication: PYREXIA
     Dosage: 1 G, EVERY 1 TO 2 HOURS
     Route: 048
     Dates: start: 20200311
  3. INSULIN DEGLUDEC/LIRAGLUTIDE [Concomitant]
     Dosage: 30 IU, 1X/DAY
  4. BROMAZEPAM [Concomitant]
     Active Substance: BROMAZEPAM
     Dosage: AT BEDTIME, AS NEEDED
  5. IBUPROFEN. [Suspect]
     Active Substance: IBUPROFEN
     Indication: INFLUENZA LIKE ILLNESS
     Dosage: UNK
     Route: 048
     Dates: start: 20200311
  6. HYDROXYZINE [Concomitant]
     Active Substance: HYDROXYZINE HYDROCHLORIDE
     Dosage: 25 MG, AT BEDTIME, AS NEEDED
  7. SERTRALINE [Concomitant]
     Active Substance: SERTRALINE HYDROCHLORIDE
  8. NASONEX [Suspect]
     Active Substance: MOMETASONE FUROATE
     Indication: RHINITIS
     Dosage: UNK
     Route: 045
     Dates: start: 20200311
  9. AMLODIPINE [Concomitant]
     Active Substance: AMLODIPINE BESYLATE
     Dosage: 10 MG, 2X/DAY
  10. GLICLAZIDE [Concomitant]
     Active Substance: GLICLAZIDE
     Dosage: 120 MG, 1X/DAY
  11. PRAZEPAM [Concomitant]
     Active Substance: PRAZEPAM
     Dosage: 10 MG, AT BEDTIME, AS NEEDED

REACTIONS (4)
  - Septic shock [Fatal]
  - Acute respiratory distress syndrome [Fatal]
  - Coronavirus infection [Fatal]
  - Enterococcal infection [Fatal]

NARRATIVE: CASE EVENT DATE: 20200316
